FAERS Safety Report 5870235-X (Version None)
Quarter: 2008Q3

REPORT INFORMATION
  Report Type: 
  Country: None (occurrence: None)
  Receive Date: 20080902
  Receipt Date: 20080821
  Transmission Date: 20090109
  Serious: Yes (Death)
  Sender: FDA-Public Use
  Company Number: 237900J08USA

PATIENT
  Sex: Male
  Weight: 3.1298 kg

DRUGS (1)
  1. REBIF [Suspect]
     Indication: MULTIPLE SCLEROSIS
     Dosage: TRANSPLACENTAL
     Route: 064
     Dates: end: 20070601

REACTIONS (6)
  - CAESAREAN SECTION [None]
  - HEART RATE DECREASED [None]
  - MATERNAL DRUGS AFFECTING FOETUS [None]
  - NEONATAL ASPIRATION [None]
  - NEONATAL DISORDER [None]
  - POISONING [None]
